FAERS Safety Report 4330512-0 (Version None)
Quarter: 2004Q2

REPORT INFORMATION
  Report Type: 
  Country: None (occurrence: None)
  Receive Date: 20040401
  Receipt Date: 20040401
  Transmission Date: 20050107
  Serious: Yes (Hospitalization)
  Sender: FDA-Public Use
  Company Number: None

PATIENT
  Age: 66 Year

DRUGS (1)
  1. LEUKINE [Suspect]
     Dosage: IV
     Route: 042

REACTIONS (1)
  - ACUTE MYOCARDIAL INFARCTION [None]
